FAERS Safety Report 5035482-8 (Version None)
Quarter: 2006Q2

REPORT INFORMATION
  Report Type: 
  Country: None (occurrence: None)
  Receive Date: 20060526
  Receipt Date: 20060327
  Transmission Date: 20061013
  Serious: No
  Sender: FDA-Public Use
  Company Number: FABR-11462

PATIENT
  Age: 46 Year
  Sex: Male
  Weight: 78 kg

DRUGS (5)
  1. FABRAZYME [Suspect]
     Indication: FABRY'S DISEASE
     Dosage: 70 MG Q2WKS IV
     Route: 042
     Dates: start: 20031202, end: 20060224
  2. HYDROCORTISONE [Concomitant]
  3. BENADRYL [Concomitant]
  4. MAXZIDE [Concomitant]
  5. VICODIN [Concomitant]

REACTIONS (8)
  - BLOOD PRESSURE DECREASED [None]
  - CHILLS [None]
  - CONFUSIONAL STATE [None]
  - COUGH [None]
  - DYSPNOEA [None]
  - LETHARGY [None]
  - PALLOR [None]
  - THROAT TIGHTNESS [None]
